FAERS Safety Report 19471933 (Version 1)
Quarter: 2021Q2

REPORT INFORMATION
  Report Type: Spontaneous
  Country: US (occurrence: US)
  Receive Date: 20210629
  Receipt Date: 20210629
  Transmission Date: 20210717
  Serious: Yes (Hospitalization)
  Sender: FDA-Public Use
  Company Number: None

PATIENT
  Sex: Male
  Weight: 65.77 kg

DRUGS (2)
  1. IRINOTECAN LIPOSOME (MM?398, ONIVYDE [Concomitant]
  2. 5?FLUOROURACIL [Suspect]
     Active Substance: FLUOROURACIL

REACTIONS (1)
  - Jugular vein thrombosis [None]

NARRATIVE: CASE EVENT DATE: 20210618
